FAERS Safety Report 9891130 (Version 1)
Quarter: 2014Q1

REPORT INFORMATION
  Report Type: Report from Study
  Country: AU (occurrence: AU)
  Receive Date: 20140212
  Receipt Date: 20140212
  Transmission Date: 20141002
  Serious: Yes (Hospitalization)
  Sender: FDA-Public Use
  Company Number: AU-SA-2014SA013701

PATIENT
  Age: 74 Year
  Sex: Male

DRUGS (8)
  1. ARAVA [Suspect]
     Indication: PRODUCT USED FOR UNKNOWN INDICATION
     Route: 048
     Dates: start: 20110614
  2. METHOTREXATE [Concomitant]
  3. PREDNISONE [Concomitant]
  4. ACLASTA [Concomitant]
  5. PANAMAX [Concomitant]
  6. CALCIUM [Concomitant]
  7. VITAMIN D3 [Concomitant]
  8. PANAFCORT [Concomitant]

REACTIONS (2)
  - Fall [Not Recovered/Not Resolved]
  - Soft tissue injury [Unknown]
